FAERS Safety Report 5514356-X (Version None)
Quarter: 2007Q4

REPORT INFORMATION
  Report Type: 
  Country: None (occurrence: None)
  Receive Date: 20071113
  Receipt Date: 20070625
  Transmission Date: 20080405
  Serious: No
  Sender: FDA-Public Use
  Company Number: A0648183A

PATIENT
  Age: 74 Year
  Sex: Male

DRUGS (16)
  1. COREG [Suspect]
     Indication: HYPERTENSION
     Dosage: 12.5MG TWICE PER DAY
     Route: 048
     Dates: start: 20070201
  2. COREG CR [Suspect]
     Indication: HYPERTENSION
     Dosage: 40MG PER DAY
     Route: 048
     Dates: start: 20070401
  3. LOTENSIN [Concomitant]
  4. FELODIPINE [Concomitant]
  5. PLAVIX [Concomitant]
  6. WATER PILL [Concomitant]
  7. POTASSIUM CHLORIDE [Concomitant]
  8. IRON TABLETS [Concomitant]
  9. ASPIRIN [Concomitant]
  10. ZOCOR [Concomitant]
  11. ZETIA [Concomitant]
  12. AMIODARONE HCL [Concomitant]
  13. FUROSEMIDE [Concomitant]
  14. FISH OIL [Concomitant]
  15. BETAGEN [Concomitant]
  16. ALPRAZOLAM [Concomitant]

REACTIONS (1)
  - DRUG INEFFECTIVE [None]
